FAERS Safety Report 9890839 (Version 1)
Quarter: 2014Q1

REPORT INFORMATION
  Report Type: Spontaneous
  Country: US (occurrence: None)
  Receive Date: 20140210
  Receipt Date: 20140210
  Transmission Date: 20141002
  Serious: No
  Sender: FDA-Public Use
  Company Number: None

PATIENT
  Age: 50 Year
  Sex: Male
  Weight: 90.72 kg

DRUGS (1)
  1. NORCO [Suspect]
     Indication: PAIN
     Dosage: 1  FOUR TIMES DAILY  TAKEN BY MOUTH
     Route: 048
     Dates: start: 20140122, end: 20140130

REACTIONS (5)
  - Nausea [None]
  - Abdominal pain upper [None]
  - Irritability [None]
  - Fatigue [None]
  - Inadequate analgesia [None]
